FAERS Safety Report 8244761-2 (Version None)
Quarter: 2012Q1

REPORT INFORMATION
  Report Type: 
  Country: None (occurrence: None)
  Receive Date: 20120329
  Receipt Date: 20110323
  Transmission Date: 20120608
  Serious: No
  Sender: FDA-Public Use
  Company Number: US-MYLANLABS-2011S1006069

PATIENT
  Age: 36 Year
  Sex: Male

DRUGS (3)
  1. BACLOFEN [Concomitant]
     Indication: MUSCLE RELAXANT THERAPY
  2. FENTANYL-100 [Suspect]
     Indication: BACK PAIN
     Dosage: CHANGED Q72H
     Route: 062
     Dates: start: 20110316
  3. OXYCODONE HCL [Concomitant]
     Indication: BREAKTHROUGH PAIN
     Route: 048

REACTIONS (5)
  - DRUG EFFECT INCREASED [None]
  - FEELING ABNORMAL [None]
  - DRUG EFFECT DECREASED [None]
  - EUPHORIC MOOD [None]
  - FATIGUE [None]
